FAERS Safety Report 8183428-6 (Version None)
Quarter: 2012Q1

REPORT INFORMATION
  Report Type: 
  Country: None (occurrence: None)
  Receive Date: 20120305
  Receipt Date: 20120214
  Transmission Date: 20120608
  Serious: Yes (Other)
  Sender: FDA-Public Use
  Company Number: US-BAYER-2012-014209

PATIENT
  Sex: Female

DRUGS (2)
  1. BETASERON [Suspect]
     Dosage: UNK
  2. AMPYRA [Concomitant]
     Dosage: 10 MG, BID
     Route: 048
     Dates: start: 20110701

REACTIONS (1)
  - CHEST PAIN [None]
